FAERS Safety Report 6890009-0 (Version None)
Quarter: 2010Q3

REPORT INFORMATION
  Report Type: 
  Country: None (occurrence: None)
  Receive Date: 20100730
  Receipt Date: 20080702
  Transmission Date: 20110219
  Serious: No
  Sender: FDA-Public Use
  Company Number: US-PFIZER INC-2008042261

PATIENT
  Sex: Female
  Weight: 72.57 kg

DRUGS (7)
  1. LIPITOR [Suspect]
     Indication: BLOOD CHOLESTEROL INCREASED
     Dates: start: 20080501
  2. DRUG, UNSPECIFIED [Suspect]
  3. VALTREX [Concomitant]
  4. ZOLOFT [Concomitant]
  5. MONTELUKAST SODIUM [Concomitant]
  6. NEXIUM [Concomitant]
  7. TOPROL-XL [Concomitant]

REACTIONS (2)
  - RASH [None]
  - WRONG TECHNIQUE IN DRUG USAGE PROCESS [None]
